FAERS Safety Report 6558409-6 (Version None)
Quarter: 2010Q1

REPORT INFORMATION
  Report Type: 
  Country: None (occurrence: None)
  Receive Date: 20100129
  Receipt Date: 20100120
  Transmission Date: 20100710
  Serious: Yes (Hospitalization)
  Sender: FDA-Public Use
  Company Number: FR-JNJFOC-20091007207

PATIENT
  Sex: Male
  Weight: 98 kg

DRUGS (4)
  1. PREZISTA [Suspect]
     Indication: HIV INFECTION
     Route: 048
  2. NORVIR [Concomitant]
     Indication: HIV INFECTION
     Route: 065
  3. INDOMETHACIN [Concomitant]
     Indication: ANKYLOSING SPONDYLITIS
     Route: 065
  4. OMEPRAZOLE [Concomitant]
     Indication: PROPHYLAXIS
     Route: 065

REACTIONS (2)
  - ARRHYTHMIA [None]
  - BRUGADA SYNDROME [None]
